FAERS Safety Report 4804337-3 (Version None)
Quarter: 2005Q4

REPORT INFORMATION
  Report Type: 
  Country: None (occurrence: None)
  Receive Date: 20051017
  Receipt Date: 20051004
  Transmission Date: 20060501
  Serious: Yes (Other)
  Sender: FDA-Public Use
  Company Number: 2005137662

PATIENT
  Age: 59 Year
  Sex: Female

DRUGS (4)
  1. LIPITOR [Suspect]
     Indication: BLOOD CHOLESTEROL INCREASED
     Dosage: 10 MG (10 MG, 1 IN 1 D), ORAL   1 YEAR AGO
     Route: 048
  2. PREMPRO [Suspect]
     Indication: MENOPAUSAL SYMPTOMS
     Dates: start: 20050801, end: 20050101
  3. SYNTHROID [Concomitant]
  4. PREVACID [Concomitant]

REACTIONS (4)
  - BREAST MASS [None]
  - DRUG INTERACTION [None]
  - MENOPAUSAL SYMPTOMS [None]
  - ORAL CANDIDIASIS [None]
